FAERS Safety Report 4292396-9 (Version None)
Quarter: 2004Q1

REPORT INFORMATION
  Report Type: 
  Country: None (occurrence: None)
  Receive Date: 20040126
  Receipt Date: 20030827
  Transmission Date: 20041129
  Serious: No
  Sender: FDA-Public Use
  Company Number: USA030845605

PATIENT
  Age: 80 Year
  Sex: Female
  Weight: 66 kg

DRUGS (5)
  1. FORTEO [Suspect]
     Indication: OSTEOPOROSIS
     Dates: start: 20030711
  2. LOTENSIN [Concomitant]
     Indication: HYPERTENSION
  3. MYSOLINE [Concomitant]
  4. LOZOL [Concomitant]
  5. DESYREL [Concomitant]
     Indication: ANTIDEPRESSANT THERAPY

REACTIONS (2)
  - HYPOTENSION [None]
  - MUSCLE CRAMP [None]
